FAERS Safety Report 23609489 (Version 1)
Quarter: 2024Q1

REPORT INFORMATION
  Report Type: Spontaneous
  Country: US (occurrence: US)
  Receive Date: 20240308
  Receipt Date: 20240308
  Transmission Date: 20240409
  Serious: No
  Sender: FDA-Public Use
  Company Number: US-AVEO PHARMACEUTICALS, INC.-2024-AVEO-US000005

PATIENT

DRUGS (14)
  1. FOTIVDA [Suspect]
     Active Substance: TIVOZANIB HYDROCHLORIDE
     Indication: Renal cell carcinoma
     Dosage: 1.34 MG, DAILY FOR 21 DAYS WITH 7 DAYS OFF (28-DAY CYCLE)
     Route: 048
     Dates: start: 20231228
  2. ALPRAZOLAM [Concomitant]
     Active Substance: ALPRAZOLAM
     Dosage: 0.5 MG
     Route: 048
  3. AMLODIPINE [Concomitant]
     Active Substance: AMLODIPINE BESYLATE
     Dosage: 5 MG
  4. GABAPENTIN [Concomitant]
     Active Substance: GABAPENTIN
     Dosage: 100 MG
     Route: 048
  5. HYDROCHLOROTHIAZIDE [Concomitant]
     Active Substance: HYDROCHLOROTHIAZIDE
     Dosage: 25 MG
     Route: 048
  6. NORCO [Concomitant]
     Active Substance: ACETAMINOPHEN\HYDROCODONE BITARTRATE
     Dosage: 5-325 MG
  7. LEVOTHYROXINE SODIUM [Concomitant]
     Active Substance: LEVOTHYROXINE SODIUM
     Dosage: 75 UG
     Route: 048
  8. LOSARTAN [Concomitant]
     Active Substance: LOSARTAN
     Dosage: 100 MG
  9. MAGNESIUM OXIDE [Concomitant]
     Active Substance: MAGNESIUM OXIDE
     Dosage: 400 MG
     Route: 048
  10. METHOCARBAMOL [Concomitant]
     Active Substance: METHOCARBAMOL
     Dosage: 500 MG
     Route: 048
  11. MIRALAX [Concomitant]
     Active Substance: POLYETHYLENE GLYCOL 3350
     Dosage: 17 G/SCOOP
     Route: 048
  12. PRAVASTATIN [Concomitant]
     Active Substance: PRAVASTATIN
     Dosage: 20 MG
  13. HYDROCODONE [Concomitant]
     Active Substance: HYDROCODONE
     Dosage: 5-325 MG
     Route: 048
  14. PAZOPANIB [Concomitant]
     Active Substance: PAZOPANIB

REACTIONS (7)
  - Rash [Unknown]
  - Nausea [Unknown]
  - Blood pressure increased [Not Recovered/Not Resolved]
  - Rash macular [Unknown]
  - Headache [Unknown]
  - Muscle spasms [Not Recovered/Not Resolved]
  - Constipation [Unknown]
